FAERS Safety Report 8463420-4 (Version None)
Quarter: 2012Q2

REPORT INFORMATION
  Report Type: 
  Country: None (occurrence: None)
  Receive Date: 20120625
  Receipt Date: 20120618
  Transmission Date: 20120825
  Serious: Yes (Disabling, Other)
  Sender: FDA-Public Use
  Company Number: US-MERCK-1206USA03012

PATIENT
  Age: 61 Year
  Sex: Female

DRUGS (4)
  1. COZAAR [Suspect]
     Indication: BLOOD CHOLESTEROL
     Route: 048
  2. COZAAR [Suspect]
     Indication: HYPERTENSION
     Route: 048
  3. ZOCOR [Suspect]
     Route: 048
  4. PRINIVIL [Suspect]
     Route: 048

REACTIONS (9)
  - APHONIA [None]
  - ADVERSE EVENT [None]
  - URINARY INCONTINENCE [None]
  - PERIPHERAL PARALYSIS [None]
  - DISABILITY [None]
  - CEREBROVASCULAR ACCIDENT [None]
  - OFF LABEL USE [None]
  - DIABETES MELLITUS INADEQUATE CONTROL [None]
  - BLOOD PRESSURE INADEQUATELY CONTROLLED [None]
